FAERS Safety Report 10191224 (Version 1)
Quarter: 2014Q2

REPORT INFORMATION
  Report Type: Spontaneous
  Country: ES (occurrence: ES)
  Receive Date: 20140523
  Receipt Date: 20140523
  Transmission Date: 20141212
  Serious: Yes (Hospitalization, Other)
  Sender: FDA-Public Use
  Company Number: ES-UCBSA-120958

PATIENT
  Sex: Female

DRUGS (2)
  1. CIMZIA [Suspect]
     Dosage: 400 MG
     Route: 058
     Dates: start: 201404
  2. NO CONCOMITANT MEDICATION [Concomitant]

REACTIONS (1)
  - Bronchospasm [Unknown]
